FAERS Safety Report 23810137 (Version 1)
Quarter: 2024Q2

REPORT INFORMATION
  Report Type: Spontaneous
  Country: IT (occurrence: IT)
  Receive Date: 20240502
  Receipt Date: 20240502
  Transmission Date: 20240716
  Serious: Yes (Hospitalization)
  Sender: FDA-Public Use
  Company Number: IT-BAUSCH-BL-2024-006832

PATIENT
  Age: 79 Year
  Sex: Male

DRUGS (1)
  1. MESALAMINE [Suspect]
     Active Substance: MESALAMINE
     Indication: Inflammatory bowel disease
     Dosage: FOR ABOUT 35 DAYS
     Route: 065

REACTIONS (3)
  - Ventricular dysfunction [Recovering/Resolving]
  - Myopericarditis [Recovering/Resolving]
  - Hypersensitivity myocarditis [Recovering/Resolving]
